FAERS Safety Report 5449878-3 (Version None)
Quarter: 2007Q3

REPORT INFORMATION
  Report Type: 
  Country: None (occurrence: None)
  Receive Date: 20070907
  Receipt Date: 20070830
  Transmission Date: 20080115
  Serious: Yes (Death)
  Sender: FDA-Public Use
  Company Number: 163-20785-07081186

PATIENT
  Age: 78 Year
  Sex: Male

DRUGS (1)
  1. THALOMID [Suspect]
     Indication: MYELOFIBROSIS
     Dosage: 50 MG, 1 IN 1 D, ORAL
     Route: 048
     Dates: start: 20061201, end: 20070801

REACTIONS (6)
  - BONE MARROW FAILURE [None]
  - CARDIOMYOPATHY [None]
  - COMPLICATIONS OF TRANSPLANTED LIVER [None]
  - DISEASE PROGRESSION [None]
  - HEPATITIS [None]
  - MYELOFIBROSIS [None]
